FAERS Safety Report 15522590 (Version 1)
Quarter: 2018Q4

REPORT INFORMATION
  Report Type: Report from Study
  Country: US (occurrence: US)
  Receive Date: 20181017
  Receipt Date: 20181017
  Transmission Date: 20190205
  Serious: No
  Sender: FDA-Public Use
  Company Number: US-AMGEN-USASL2018111183

PATIENT
  Age: 70 Year
  Sex: Female
  Weight: 83.45 kg

DRUGS (2)
  1. ASA [Concomitant]
     Active Substance: ASPIRIN
     Dosage: 8 MG, QD
  2. REPATHA [Suspect]
     Active Substance: EVOLOCUMAB
     Indication: HYPERCHOLESTEROLAEMIA
     Dosage: 140 MG, Q2WK
     Route: 058
     Dates: start: 201802

REACTIONS (4)
  - Injection site pruritus [Unknown]
  - Drug hypersensitivity [Unknown]
  - Injection site reaction [Recovered/Resolved]
  - Injection site haemorrhage [Unknown]

NARRATIVE: CASE EVENT DATE: 2018
